FAERS Safety Report 7278365-5 (Version None)
Quarter: 2011Q1

REPORT INFORMATION
  Report Type: 
  Country: None (occurrence: None)
  Receive Date: 20110207
  Receipt Date: 20110127
  Transmission Date: 20110831
  Serious: Yes (Hospitalization)
  Sender: FDA-Public Use
  Company Number: US-MERCK-1101USA03221

PATIENT

DRUGS (2)
  1. INTELENCE [Concomitant]
     Route: 065
  2. ISENTRESS [Suspect]
     Indication: HIV INFECTION
     Route: 048

REACTIONS (5)
  - CARDIAC FIBRILLATION [None]
  - HYPOAESTHESIA [None]
  - CARDIAC VALVE DISEASE [None]
  - STAPHYLOCOCCAL INFECTION [None]
  - RESPIRATORY FAILURE [None]
